FAERS Safety Report 11828292 (Version 1)
Quarter: 2015Q4

REPORT INFORMATION
  Report Type: Spontaneous
  Country: SA (occurrence: SA)
  Receive Date: 20151211
  Receipt Date: 20151211
  Transmission Date: 20160305
  Serious: Yes (Hospitalization)
  Sender: FDA-Public Use
  Company Number: SA-FRESENIUS KABI-FK201506502

PATIENT
  Age: 26 Year
  Sex: Female

DRUGS (4)
  1. CARBOPLATIN. [Concomitant]
     Active Substance: CARBOPLATIN
  2. CISPLATIN (MANUFACTURER UNKNOWN) [Suspect]
     Active Substance: CISPLATIN
     Indication: ENDOMETRIAL CANCER RECURRENT
     Route: 065
  3. PACLITAXEL. [Concomitant]
     Active Substance: PACLITAXEL
  4. DOXORUBICIN (MANUFACTURER UNKNOWN) [Suspect]
     Active Substance: DOXORUBICIN
     Indication: ENDOMETRIAL CANCER RECURRENT
     Route: 065

REACTIONS (1)
  - Anastomotic leak [Recovered/Resolved]
